FAERS Safety Report 14457220 (Version 6)
Quarter: 2018Q2

REPORT INFORMATION
  Report Type: Other
  Country: CA (occurrence: CA)
  Receive Date: 20180130
  Receipt Date: 20180422
  Transmission Date: 20180711
  Serious: Yes (Hospitalization, Other)
  Sender: FDA-Public Use
  Company Number: CA-APOTEX-2018AP005656

PATIENT
  Age: 56 Year
  Sex: Female

DRUGS (6)
  1. SALBUTAMOL [Suspect]
     Active Substance: ALBUTEROL
     Indication: PRODUCT USED FOR UNKNOWN INDICATION
     Dosage: UNK
     Route: 065
  2. SINGULAIR [Concomitant]
     Active Substance: MONTELUKAST SODIUM
     Indication: PRODUCT USED FOR UNKNOWN INDICATION
     Dosage: 10 MG, QD
     Route: 065
  3. FLUTICASONE PROPIONATE W/SALMETEROL XINAFOATE [Suspect]
     Active Substance: FLUTICASONE PROPIONATE\SALMETEROL XINAFOATE
     Indication: PRODUCT USED FOR UNKNOWN INDICATION
     Dosage: UNK
     Route: 065
  4. ANTIHISTAMINES [Concomitant]
     Active Substance: ANTIHISTAMINES NOS
     Indication: PRODUCT USED FOR UNKNOWN INDICATION
     Dosage: UNK
     Route: 065
  5. SPIRIVA [Concomitant]
     Active Substance: TIOTROPIUM BROMIDE MONOHYDRATE
     Indication: PRODUCT USED FOR UNKNOWN INDICATION
     Dosage: 1 DF, QD
     Route: 065
  6. ESTRADOT [Concomitant]
     Active Substance: ESTRADIOL
     Indication: PRODUCT USED FOR UNKNOWN INDICATION
     Dosage: UNK
     Route: 065

REACTIONS (38)
  - Breath sounds abnormal [Unknown]
  - Bronchial secretion retention [Unknown]
  - Induration [Unknown]
  - Anosmia [Unknown]
  - Cough [Unknown]
  - Hyperaemia [Unknown]
  - Nasal disorder [Unknown]
  - Nasal polyps [Unknown]
  - Post procedural complication [Unknown]
  - Productive cough [Unknown]
  - Sinusitis [Unknown]
  - Spirometry abnormal [Unknown]
  - Upper respiratory tract infection [Unknown]
  - Drug ineffective [Unknown]
  - Atopy [Unknown]
  - Dyspnoea [Unknown]
  - Lung disorder [Unknown]
  - Seasonal allergy [Unknown]
  - Asthma [Unknown]
  - Face oedema [Unknown]
  - Rhinitis [Unknown]
  - Wheezing [Unknown]
  - Nausea [Unknown]
  - Asthmatic crisis [Unknown]
  - Bronchial obstruction [Unknown]
  - Conjunctivitis [Unknown]
  - Sinus headache [Unknown]
  - Insomnia [Unknown]
  - Bronchiectasis [Unknown]
  - Fatigue [Unknown]
  - Mechanical urticaria [Unknown]
  - Eosinophil count increased [Unknown]
  - Ill-defined disorder [Unknown]
  - Nasal discharge discolouration [Unknown]
  - Sneezing [Unknown]
  - Lung hyperinflation [Unknown]
  - Nasal congestion [Unknown]
  - Sputum discoloured [Unknown]
